FAERS Safety Report 18163528 (Version 2)
Quarter: 2022Q2

REPORT INFORMATION
  Report Type: Spontaneous
  Country: US (occurrence: US)
  Receive Date: 20200818
  Receipt Date: 20220519
  Transmission Date: 20220721
  Serious: No
  Sender: FDA-Public Use
  Company Number: US-PFIZER INC-2019144297

PATIENT
  Sex: Female

DRUGS (2)
  1. FRAGMIN [Suspect]
     Active Substance: DALTEPARIN SODIUM
     Indication: Antiphospholipid syndrome
     Dosage: UNK
  2. FRAGMIN [Suspect]
     Active Substance: DALTEPARIN SODIUM
     Dosage: INJECT ONE SYRINGE (18,000 ANTI-XA UNIT/0.72 ML SYRINGE) ONCE DAILY
     Route: 058

REACTIONS (3)
  - Off label use [Unknown]
  - Off label use [Unknown]
  - Confusional state [Unknown]
